FAERS Safety Report 12840251 (Version 1)
Quarter: 2016Q4

REPORT INFORMATION
  Report Type: Report from Study
  Country: CA (occurrence: CA)
  Receive Date: 20161012
  Receipt Date: 20161012
  Transmission Date: 20170207
  Serious: Yes (Death, Hospitalization, Other)
  Sender: FDA-Public Use
  Company Number: CA-B.I. PHARMACEUTICALS,INC./RIDGEFIELD-2015-BI-32861CN

PATIENT
  Age: 76 Year
  Sex: Male

DRUGS (4)
  1. GILOTRIF [Suspect]
     Active Substance: AFATINIB
     Route: 048
     Dates: start: 20160615, end: 20160921
  2. GILOTRIF [Suspect]
     Active Substance: AFATINIB
     Route: 048
  3. GILOTRIF [Suspect]
     Active Substance: AFATINIB
     Route: 048
     Dates: start: 20160615, end: 20160921
  4. GILOTRIF [Suspect]
     Active Substance: AFATINIB
     Indication: PRODUCT USED FOR UNKNOWN INDICATION
     Route: 048
     Dates: start: 20150601

REACTIONS (16)
  - Cerebrovascular accident [Unknown]
  - Asthenia [Unknown]
  - Drug intolerance [Unknown]
  - Death [Fatal]
  - Abasia [Unknown]
  - Eating disorder [Unknown]
  - Pain [Not Recovered/Not Resolved]
  - Vomiting [Unknown]
  - Hospitalisation [Unknown]
  - Visual impairment [Unknown]
  - Hallucination [Unknown]
  - Diarrhoea [Not Recovered/Not Resolved]
  - Dizziness [Not Recovered/Not Resolved]
  - Cerebrovascular accident [Unknown]
  - Critical illness [Unknown]
  - Brain injury [Unknown]

NARRATIVE: CASE EVENT DATE: 20150616
